FAERS Safety Report 15017952 (Version 1)
Quarter: 2018Q2

REPORT INFORMATION
  Report Type: Spontaneous
  Country: AR (occurrence: AR)
  Receive Date: 20180615
  Receipt Date: 20180615
  Transmission Date: 20180711
  Serious: Yes (Hospitalization)
  Sender: FDA-Public Use
  Company Number: AR-PFIZER INC-2018236685

PATIENT
  Age: 27 Year
  Sex: Female

DRUGS (1)
  1. DOLTEN [Suspect]
     Active Substance: KETOROLAC TROMETHAMINE
     Indication: MIGRAINE
     Dosage: 10 MG, 4X/DAY (EVERY 6 HOURS)
     Route: 048
     Dates: start: 20180514, end: 20180517

REACTIONS (4)
  - Gastrointestinal disorder [Recovered/Resolved]
  - Product friable [Unknown]
  - Suspected counterfeit product [Unknown]
  - Diarrhoea [Recovered/Resolved]

NARRATIVE: CASE EVENT DATE: 20180514
